FAERS Safety Report 8006546-1 (Version None)
Quarter: 2011Q4

REPORT INFORMATION
  Report Type: 
  Country: None (occurrence: None)
  Receive Date: 20111227
  Receipt Date: 20111219
  Transmission Date: 20120403
  Serious: Yes (Other)
  Sender: FDA-Public Use
  Company Number: US-AMGEN-USASP2011063020

PATIENT
  Age: 80 Year
  Sex: Male
  Weight: 94.785 kg

DRUGS (10)
  1. METHOTREXATE [Concomitant]
     Indication: RHEUMATOID ARTHRITIS
     Dosage: 25 MG, QWK
     Route: 048
     Dates: start: 20080101
  2. HYDROXYCHLOROQUINE [Concomitant]
     Indication: RHEUMATOID ARTHRITIS
     Dosage: 200 MG, BID
     Route: 048
     Dates: start: 20080101
  3. SYNTHROID [Concomitant]
     Dosage: UNK
  4. SIMVASTATIN [Concomitant]
     Dosage: UNK
  5. LISINOPRIL [Concomitant]
     Dosage: UNK
  6. ENBREL [Suspect]
     Indication: RHEUMATOID ARTHRITIS
     Dosage: 50 MG, QWK
     Route: 058
     Dates: start: 20091103, end: 20111128
  7. HYDROCHLOROTHIAZIDE [Concomitant]
     Dosage: UNK
  8. AVODART [Concomitant]
     Dosage: 0.5 MG, QD
     Route: 048
  9. METOPROLOL SUCCINATE [Concomitant]
     Indication: HYPERTENSION
     Dosage: 20 MG, QD
     Route: 048
  10. NIFEDIPINE [Concomitant]
     Indication: HYPERTENSION
     Dosage: 20 MG, QD
     Route: 048

REACTIONS (3)
  - DERMATITIS PSORIASIFORM [None]
  - PROSTATE CANCER [None]
  - RASH PRURITIC [None]
